FAERS Safety Report 19236262 (Version 3)
Quarter: 2021Q2

REPORT INFORMATION
  Report Type: Other
  Country: US (occurrence: US)
  Receive Date: 20210510
  Receipt Date: 20210526
  Transmission Date: 20210717
  Serious: Yes (Other)
  Sender: FDA-Public Use
  Company Number: US-INTERCEPT-PM2021001438

PATIENT
  Age: 78 Year
  Sex: Female

DRUGS (2)
  1. URSODEOXYCHOLIC ACID [Concomitant]
     Active Substance: URSODIOL
     Dosage: UNK
  2. OCALIVA [Suspect]
     Active Substance: OBETICHOLIC ACID
     Indication: PRIMARY BILIARY CHOLANGITIS
     Dosage: 5 MILLIGRAM, QW
     Route: 048
     Dates: start: 20210419, end: 20210430

REACTIONS (6)
  - Emergency care [Recovered/Resolved]
  - Faeces discoloured [Recovering/Resolving]
  - Urinary tract infection [Not Recovered/Not Resolved]
  - Melaena [Recovering/Resolving]
  - Gastric antral vascular ectasia [Unknown]
  - Dyspepsia [Not Recovered/Not Resolved]

NARRATIVE: CASE EVENT DATE: 2021
